FAERS Safety Report 8951046 (Version 2)
Quarter: 2013Q1

REPORT INFORMATION
  Report Type: Spontaneous
  Country: US (occurrence: US)
  Receive Date: 20121207
  Receipt Date: 20130116
  Transmission Date: 20140127
  Serious: Yes (Death, Congenital Anomaly, Other)
  Sender: FDA-Public Use
  Company Number: US-PFIZER INC-2012305044

PATIENT
  Sex: Female

DRUGS (2)
  1. ZOLOFT [Suspect]
     Indication: DEPRESSION
     Dosage: UNK
     Route: 064
     Dates: start: 20040709
  2. PAXIL [Suspect]
     Indication: DEPRESSION
     Dosage: UNK
     Route: 064
     Dates: start: 2004

REACTIONS (4)
  - Maternal exposure timing unspecified [Fatal]
  - Ventricular septal defect [Fatal]
  - Atrial septal defect [Fatal]
  - Cardiac failure congestive [Fatal]
